FAERS Safety Report 9295752 (Version 1)
Quarter: 2013Q2

REPORT INFORMATION
  Report Type: Spontaneous
  Country: US (occurrence: None)
  Receive Date: 20130516
  Receipt Date: 20130516
  Transmission Date: 20140414
  Serious: Yes (Hospitalization)
  Sender: FDA-Public Use
  Company Number: None

PATIENT
  Age: 56 Year
  Sex: Male
  Weight: 90.7 kg

DRUGS (1)
  1. CETUXIMAB (ERBITUX) (714692) [Suspect]

REACTIONS (8)
  - Infusion related reaction [None]
  - Flushing [None]
  - Pruritus [None]
  - Hypotension [None]
  - Bradycardia [None]
  - Nausea [None]
  - Oxygen saturation decreased [None]
  - Unresponsive to stimuli [None]
